FAERS Safety Report 5673817-3 (Version None)
Quarter: 2008Q1

REPORT INFORMATION
  Report Type: 
  Country: None (occurrence: None)
  Receive Date: 20080319
  Receipt Date: 20080307
  Transmission Date: 20080703
  Serious: Yes (Other)
  Sender: FDA-Public Use
  Company Number: AU-PFIZER INC-2008023422

PATIENT
  Age: 59 Year
  Sex: Male

DRUGS (8)
  1. CHAMPIX [Suspect]
  2. DIABEX [Concomitant]
  3. INSULIN [Concomitant]
  4. TRITACE [Concomitant]
  5. LIPITOR [Concomitant]
  6. ASTRIX [Concomitant]
  7. CIPRAMIL [Concomitant]
     Indication: DEPRESSION
  8. CAMPRAL [Concomitant]

REACTIONS (1)
  - BLOOD GLUCOSE INCREASED [None]
